FAERS Safety Report 12613688 (Version 1)
Quarter: 2016Q3

REPORT INFORMATION
  Report Type: Spontaneous
  Country: US (occurrence: None)
  Receive Date: 20160801
  Receipt Date: 20160801
  Transmission Date: 20161109
  Serious: Yes (Disabling)
  Sender: FDA-Public Use
  Company Number: None

PATIENT
  Age: 47 Year
  Sex: Female
  Weight: 72.58 kg

DRUGS (2)
  1. MULTIVITAMIN [Concomitant]
     Active Substance: VITAMINS
  2. SULFAMETHOXAZOLE/TRIMETHORPRIMO [Suspect]
     Active Substance: SULFAMETHOXAZOLE\TRIMETHOPRIM
     Indication: URINARY TRACT INFECTION
     Route: 048
     Dates: start: 20160727, end: 20160727

REACTIONS (12)
  - Drug hypersensitivity [None]
  - Spinal pain [None]
  - Arthralgia [None]
  - Fatigue [None]
  - Nausea [None]
  - Impaired work ability [None]
  - Activities of daily living impaired [None]
  - Bone pain [None]
  - Muscle spasms [None]
  - Headache [None]
  - Photosensitivity reaction [None]
  - Asthma [None]

NARRATIVE: CASE EVENT DATE: 20160728
